FAERS Safety Report 8902588 (Version 1)
Quarter: 2012Q4

REPORT INFORMATION
  Report Type: 
  Country: GB (occurrence: GB)
  Receive Date: 20121112
  Receipt Date: 20121112
  Transmission Date: 20130627
  Serious: Yes (Other)
  Sender: FDA-Public Use
  Company Number: GB-MYLANLABS-2012S1022617

PATIENT
  Age: 64 Year
  Sex: Male

DRUGS (6)
  1. FLUDARABINE [Suspect]
     Indication: LYMPHOPLASMACYTOID LYMPHOMA/IMMUNOCYTOMA REFRACTORY
     Route: 065
  2. CYCLOPHOSPHAMIDE [Concomitant]
     Indication: LYMPHOPLASMACYTOID LYMPHOMA/IMMUNOCYTOMA REFRACTORY
     Route: 065
  3. RITUXIMAB [Concomitant]
     Indication: LYMPHOPLASMACYTOID LYMPHOMA/IMMUNOCYTOMA REFRACTORY
     Route: 065
  4. FLUCONAZOLE [Concomitant]
     Indication: ANTIBIOTIC PROPHYLAXIS
     Route: 065
  5. ACICLOVIR [Concomitant]
     Indication: ANTIBIOTIC PROPHYLAXIS
     Route: 065
  6. COTRIMOXAZOLE [Concomitant]
     Indication: ANTIBIOTIC PROPHYLAXIS
     Route: 065

REACTIONS (1)
  - Cytomegalovirus oesophagitis [Recovered/Resolved]
